FAERS Safety Report 12846728 (Version 2)
Quarter: 2017Q1

REPORT INFORMATION
  Report Type: Spontaneous
  Country: US (occurrence: US)
  Receive Date: 20161014
  Receipt Date: 20170106
  Transmission Date: 20170428
  Serious: Yes (Other)
  Sender: FDA-Public Use
  Company Number: US-PFIZER INC-2015346116

PATIENT
  Sex: Male

DRUGS (1)
  1. DEMEROL [Suspect]
     Active Substance: MEPERIDINE HYDROCHLORIDE
     Dosage: SHOT

REACTIONS (2)
  - Loss of consciousness [Recovered/Resolved]
  - Drug hypersensitivity [Unknown]
